FAERS Safety Report 17682599 (Version 2)
Quarter: 2020Q2

REPORT INFORMATION
  Report Type: Spontaneous
  Country: BR (occurrence: BR)
  Receive Date: 20200419
  Receipt Date: 20200615
  Transmission Date: 20200714
  Serious: Yes (Other)
  Sender: FDA-Public Use
  Company Number: BR-ALEXION PHARMACEUTICALS INC-A202005304

PATIENT
  Age: 5 Year
  Sex: Male
  Weight: 9.5 kg

DRUGS (1)
  1. STRENSIQ [Suspect]
     Active Substance: ASFOTASE ALFA
     Indication: HYPOPHOSPHATASIA
     Dosage: 2 MG/KG, TIW
     Route: 058

REACTIONS (7)
  - Rickets [Unknown]
  - Blood alkaline phosphatase increased [Unknown]
  - Surgery [Unknown]
  - Hyperphosphataemia [Unknown]
  - Blood phosphorus increased [Unknown]
  - Tooth hypoplasia [Unknown]
  - Craniosynostosis [Unknown]
